FAERS Safety Report 5692898-4 (Version None)
Quarter: 2008Q2

REPORT INFORMATION
  Report Type: 
  Country: None (occurrence: None)
  Receive Date: 20080326
  Receipt Date: 20080109
  Transmission Date: 20081010
  Serious: Yes (Hospitalization)
  Sender: FDA-Public Use
  Company Number: US-CVT-080003

PATIENT
  Age: 97 Year
  Sex: Female
  Weight: 71 kg

DRUGS (1)
  1. RANEXA [Suspect]
     Indication: ANGINA UNSTABLE
     Dosage: 500 MG, BID, ORAL
     Route: 048
     Dates: start: 20080101, end: 20080101

REACTIONS (2)
  - ATRIOVENTRICULAR BLOCK SECOND DEGREE [None]
  - PRESYNCOPE [None]
